FAERS Safety Report 6488761-1 (Version None)
Quarter: 2009Q4

REPORT INFORMATION
  Report Type: 
  Country: None (occurrence: None)
  Receive Date: 20091210
  Receipt Date: 20091201
  Transmission Date: 20100525
  Serious: No
  Sender: FDA-Public Use
  Company Number: US-B.I. PHARMACEUTICALS,INC./RIDGEFIELD-2009-BP-13925BP

PATIENT
  Age: 68 Year
  Sex: Male

DRUGS (1)
  1. MICARDIS [Suspect]
     Dates: start: 20080101, end: 20090101

REACTIONS (1)
  - GYNAECOMASTIA [None]
